FAERS Safety Report 16408474 (Version 1)
Quarter: 2019Q2

REPORT INFORMATION
  Report Type: Spontaneous
  Country: ES (occurrence: ES)
  Receive Date: 20190610
  Receipt Date: 20190610
  Transmission Date: 20190711
  Serious: Yes (Hospitalization)
  Sender: FDA-Public Use
  Company Number: ES-SUN PHARMACEUTICAL INDUSTRIES LTD-2019RR-209986

PATIENT
  Age: 62 Year
  Sex: Female

DRUGS (2)
  1. CIPROFLOXACIN. [Suspect]
     Active Substance: CIPROFLOXACIN
     Indication: URINARY TRACT INFECTION
     Dosage: 500 MILLIGRAM, DAILY
     Route: 048
     Dates: start: 20180406, end: 20180412
  2. SINTROM [Interacting]
     Active Substance: ACENOCOUMAROL
     Indication: INTERMITTENT CLAUDICATION
     Dosage: SP
     Route: 048
     Dates: start: 20170210, end: 20180413

REACTIONS (3)
  - Haematuria [Recovered/Resolved]
  - Anaemia [Recovering/Resolving]
  - Hypocoagulable state [Recovered/Resolved]

NARRATIVE: CASE EVENT DATE: 20180412
